FAERS Safety Report 5755160-7 (Version None)
Quarter: 2008Q2

REPORT INFORMATION
  Report Type: 
  Country: None (occurrence: None)
  Receive Date: 20080602
  Receipt Date: 20080201
  Transmission Date: 20081010
  Serious: No
  Sender: FDA-Public Use
  Company Number: US-BAYER-200810888NA

PATIENT
  Age: 35 Year
  Sex: Female
  Weight: 61 kg

DRUGS (4)
  1. MAGNEVIST [Suspect]
     Indication: NUCLEAR MAGNETIC RESONANCE IMAGING
     Dosage: UNIT DOSE: 5 ML
     Route: 042
     Dates: start: 20071221, end: 20071221
  2. AMOXICILLIN [Concomitant]
  3. BIRTH CONTROL [Concomitant]
  4. ZOLOFT [Concomitant]

REACTIONS (5)
  - LACRIMATION INCREASED [None]
  - PARAESTHESIA ORAL [None]
  - RASH [None]
  - THROAT IRRITATION [None]
  - URTICARIA [None]
